FAERS Safety Report 13100652 (Version 1)
Quarter: 2017Q1

REPORT INFORMATION
  Report Type: Spontaneous
  Country: US (occurrence: US)
  Receive Date: 20170109
  Receipt Date: 20170109
  Transmission Date: 20170428
  Serious: Yes (Other)
  Sender: FDA-Public Use
  Company Number: None

PATIENT
  Age: 72 Year
  Sex: Female
  Weight: 58.97 kg

DRUGS (14)
  1. SELENIUM [Concomitant]
     Active Substance: SELENIUM
  2. LIOTHYRONINE TAB MCG PERRIGO [Suspect]
     Active Substance: LIOTHYRONINE SODIUM
     Indication: HYPOTHYROIDISM
     Dosage: FREQUENCY 1X DAY 10/26 - 11/4/16 2X DAY 11/5/2016 - 12/6/16?
     Route: 048
     Dates: start: 20161026, end: 20161206
  3. GLYBURIDE. [Concomitant]
     Active Substance: GLYBURIDE
  4. ONE MULTIVITAMIN W/METAFOLIN [Concomitant]
  5. B COMPLEX PLUS [Concomitant]
  6. LIOTHYRONINE TAB MCG PERRIGO [Suspect]
     Active Substance: LIOTHYRONINE SODIUM
     Indication: TRI-IODOTHYRONINE DECREASED
     Dosage: FREQUENCY 1X DAY 10/26 - 11/4/16 2X DAY 11/5/2016 - 12/6/16?
     Route: 048
     Dates: start: 20161026, end: 20161206
  7. SUGER OMEGA EFA (FISH OIL) [Concomitant]
  8. LEVOTHYROXINE. [Concomitant]
     Active Substance: LEVOTHYROXINE
  9. METFORMIN [Concomitant]
     Active Substance: METFORMIN HYDROCHLORIDE
  10. IRON BYSGLYCINATE [Concomitant]
  11. VITAMIN D3 [Concomitant]
     Active Substance: CHOLECALCIFEROL
  12. JANUMET [Concomitant]
     Active Substance: METFORMIN HYDROCHLORIDE\SITAGLIPTIN PHOSPHATE
  13. GINKO BILBOA [Concomitant]
  14. NACCN-ACETYLCYSTEIN [Concomitant]

REACTIONS (7)
  - Blood glucose increased [None]
  - Blunted affect [None]
  - Blood thyroid stimulating hormone decreased [None]
  - Asthenia [None]
  - Fatigue [None]
  - Seasonal affective disorder [None]
  - Mental status changes [None]

NARRATIVE: CASE EVENT DATE: 201610
